FAERS Safety Report 8934584 (Version 4)
Quarter: 2013Q1

REPORT INFORMATION
  Report Type: Spontaneous
  Country: JP (occurrence: JP)
  Receive Date: 20121129
  Receipt Date: 20130118
  Transmission Date: 20140127
  Serious: Yes (Hospitalization, Other)
  Sender: FDA-Public Use
  Company Number: JP-PFIZER INC-2012299167

PATIENT
  Age: 42 Year
  Sex: Male
  Weight: 81 kg

DRUGS (5)
  1. NOVASTAN [Suspect]
     Indication: CEREBRAL INFARCTION
     Dosage: 20-60MG (AS APPLICABLE)
     Route: 041
     Dates: start: 20120824, end: 20120829
  2. RADICUT [Suspect]
     Indication: CEREBRAL INFARCTION
     Dosage: 30 MG, 2X/DAY
     Route: 041
     Dates: start: 20120824, end: 20120829
  3. NICHOLIN [Concomitant]
     Indication: CEREBRAL INFARCTION
     Dosage: 500 MG, 2X/DAY
     Route: 051
     Dates: start: 20120824, end: 20120829
  4. SOLCOSERYL [Concomitant]
     Indication: CEREBRAL INFARCTION
     Dosage: 2 AMPLES
     Route: 051
     Dates: start: 20120824, end: 20120829
  5. PLAVIX [Concomitant]
     Dosage: UNK
     Route: 048
     Dates: start: 20120907

REACTIONS (1)
  - Disseminated intravascular coagulation [Recovered/Resolved]
